FAERS Safety Report 6522395-5 (Version None)
Quarter: 2009Q4

REPORT INFORMATION
  Report Type: 
  Country: None (occurrence: None)
  Receive Date: 20091214
  Receipt Date: 20090918
  Transmission Date: 20100525
  Serious: Yes (Other)
  Sender: FDA-Public Use
  Company Number: 657829

PATIENT
  Age: 48 Year
  Sex: Male

DRUGS (2)
  1. PEGASYS [Suspect]
     Indication: HEPATITIS C
     Dosage: 180 UG 1 PER WEEK
     Dates: start: 20090519
  2. RIBAVIRIN [Suspect]
     Indication: HEPATITIS C
     Dosage: 1000 MG DAILY
     Dates: start: 20090519

REACTIONS (5)
  - BLOOD THYROID STIMULATING HORMONE [None]
  - COUGH [None]
  - FEELING ABNORMAL [None]
  - OROPHARYNGEAL PAIN [None]
  - PSYCHOMOTOR HYPERACTIVITY [None]
